FAERS Safety Report 4517417-7 (Version None)
Quarter: 2004Q4

REPORT INFORMATION
  Report Type: 
  Country: None (occurrence: None)
  Receive Date: 20041022
  Receipt Date: 20040826
  Transmission Date: 20050328
  Serious: No
  Sender: FDA-Public Use
  Company Number: 800099

PATIENT
  Age: 42 Year
  Sex: Female
  Weight: 74.8435 kg

DRUGS (20)
  1. EXTRANEAL [Suspect]
     Indication: PERITONEAL DIALYSIS
     Dosage: 2500 CC; QD; INTRAPERITONEAL
     Route: 033
     Dates: start: 20040813, end: 20040818
  2. FOLIC ACID [Concomitant]
  3. CO-DIOVAN [Concomitant]
  4. TOPAMAX [Concomitant]
  5. ERYTHROMYCIN [Concomitant]
  6. PRILOSEC [Concomitant]
  7. SENOKOT [Concomitant]
  8. ARAMIST [Concomitant]
  9. SINISPAN [Concomitant]
  10. MIACALCIN [Concomitant]
  11. ROCALTROL [Concomitant]
  12. ATIVAN [Concomitant]
  13. RENAGEL [Concomitant]
  14. LIPITOR [Concomitant]
  15. SYNTHROID [Concomitant]
  16. MIRALAX [Concomitant]
  17. CALCIUM CARBONATE [Concomitant]
  18. VITAMIN B COMPLEX CAP [Concomitant]
  19. VITAMIN E [Concomitant]
  20. VITAMIN B6 [Concomitant]

REACTIONS (2)
  - PRURITUS [None]
  - RASH [None]
